FAERS Safety Report 15402270 (Version 3)
Quarter: 2020Q2

REPORT INFORMATION
  Report Type: Spontaneous
  Country: US (occurrence: US)
  Receive Date: 20180919
  Receipt Date: 20200608
  Transmission Date: 20200713
  Serious: Yes (Hospitalization)
  Sender: FDA-Public Use
  Company Number: US-THERATECHNOLOGIES INC.-2018-THE-TRO-000020

PATIENT
  Age: 55 Year
  Sex: Male

DRUGS (6)
  1. ENALAPRIL [Concomitant]
     Active Substance: ENALAPRIL
     Indication: HYPERTENSION
     Dosage: UNK
  2. SYNTHROID [Concomitant]
     Active Substance: LEVOTHYROXINE SODIUM
     Indication: THYROID DISORDER
     Dosage: UNK
  3. TIVICAY [Concomitant]
     Active Substance: DOLUTEGRAVIR SODIUM
     Indication: ACQUIRED IMMUNODEFICIENCY SYNDROME
     Dosage: 50 MG, QD
     Dates: end: 201805
  4. TIVICAY [Concomitant]
     Active Substance: DOLUTEGRAVIR SODIUM
     Dosage: 50 MG, BID
     Dates: start: 201805
  5. TROGARZO [Suspect]
     Active Substance: IBALIZUMAB-UIYK
     Indication: ACQUIRED IMMUNODEFICIENCY SYNDROME
     Dosage: 4 UNITS EVERY 2 WEEKS
     Route: 042
     Dates: start: 20180813
  6. CRESTOR [Concomitant]
     Active Substance: ROSUVASTATIN CALCIUM
     Indication: HYPERTENSION
     Dosage: UNK

REACTIONS (12)
  - Muscle spasms [Unknown]
  - Eosinophilic fasciitis [Recovered/Resolved]
  - Liver function test increased [Unknown]
  - Peripheral swelling [Unknown]
  - Oedema peripheral [Recovered/Resolved with Sequelae]
  - Dyspnoea [Recovered/Resolved]
  - Pain [Recovered/Resolved with Sequelae]
  - Pruritus [Not Recovered/Not Resolved]
  - Myositis [Recovered/Resolved]
  - Joint swelling [Recovered/Resolved]
  - Skin warm [Recovered/Resolved]
  - Pruritus [Recovered/Resolved]

NARRATIVE: CASE EVENT DATE: 2018
